FAERS Safety Report 19081212 (Version 1)
Quarter: 2021Q2

REPORT INFORMATION
  Report Type: Report from Study
  Country: FR (occurrence: FR)
  Receive Date: 20210401
  Receipt Date: 20210401
  Transmission Date: 20210717
  Serious: Yes (Hospitalization, Other)
  Sender: FDA-Public Use
  Company Number: FR-ADVANZ PHARMA-202103002342

PATIENT

DRUGS (3)
  1. HYDROXYCHLOROQUINE SULFATE (AUTHORIZED GENERIC),PLAQUENIL [Suspect]
     Active Substance: HYDROXYCHLOROQUINE SULFATE
     Dosage: 200 MG, TID
     Route: 048
     Dates: start: 20200415, end: 20200424
  2. SARILUMAB [Suspect]
     Active Substance: SARILUMAB
     Dosage: 400 MG, QD
     Route: 058
     Dates: start: 20200415
  3. AZITHROMYCIN ANHYDROUS. [Suspect]
     Active Substance: AZITHROMYCIN ANHYDROUS
     Dosage: 250 MG, QD (FILM?COATED TABLET)
     Route: 048
     Dates: start: 20200415, end: 20200419

REACTIONS (1)
  - Hepatic cytolysis [Recovered/Resolved]

NARRATIVE: CASE EVENT DATE: 20200419
